FAERS Safety Report 5417815-3 (Version None)
Quarter: 2007Q3

REPORT INFORMATION
  Report Type: 
  Country: None (occurrence: None)
  Receive Date: 20070817
  Receipt Date: 20070816
  Transmission Date: 20080115
  Serious: Yes (Death)
  Sender: FDA-Public Use
  Company Number: PHNU2007DE02267

PATIENT
  Sex: Female

DRUGS (1)
  1. TRILEPTAL [Suspect]
     Indication: CONVULSION
     Dosage: 600 MG/D
     Route: 048
     Dates: start: 20070101

REACTIONS (2)
  - BREAST CANCER METASTATIC [None]
  - TREMOR [None]
